FAERS Safety Report 12648160 (Version 1)
Quarter: 2016Q3

REPORT INFORMATION
  Report Type: Spontaneous
  Country: PT (occurrence: PT)
  Receive Date: 20160812
  Receipt Date: 20160812
  Transmission Date: 20161109
  Serious: Yes (Disabling, Other)
  Sender: FDA-Public Use
  Company Number: PT-AMGEN-PRTSP2016103854

PATIENT
  Age: 52 Year
  Sex: Female

DRUGS (5)
  1. PROCORALAN [Suspect]
     Active Substance: IVABRADINE
     Dosage: 2.5 MG, QD
     Route: 048
     Dates: start: 2015, end: 201603
  2. ALPRAZOLAM. [Concomitant]
     Active Substance: ALPRAZOLAM
     Indication: SLEEP DISORDER
     Dosage: UNK
     Route: 048
  3. INDERAL [Concomitant]
     Active Substance: PROPRANOLOL HYDROCHLORIDE
     Indication: BLOOD PRESSURE INCREASED
     Dosage: 10 MG, PRN
     Route: 048
     Dates: start: 2004
  4. PROCORALAN [Suspect]
     Active Substance: IVABRADINE
     Indication: HEART RATE INCREASED
     Dosage: 2.5 MG, QD
     Route: 048
     Dates: start: 201504, end: 2015
  5. INDERAL [Concomitant]
     Active Substance: PROPRANOLOL HYDROCHLORIDE
     Indication: HEART RATE INCREASED

REACTIONS (12)
  - Eye movement disorder [Recovering/Resolving]
  - Blood pressure decreased [Recovering/Resolving]
  - Photopsia [Unknown]
  - Impaired work ability [Recovering/Resolving]
  - Vertigo [Recovering/Resolving]
  - Heart rate decreased [Recovering/Resolving]
  - Thyroid hormones increased [Recovered/Resolved]
  - Diarrhoea [Unknown]
  - Hyperthyroidism [Recovered/Resolved]
  - Tremor [Unknown]
  - Abdominal pain upper [Unknown]
  - Muscle spasms [Unknown]

NARRATIVE: CASE EVENT DATE: 2015
